FAERS Safety Report 10192174 (Version 1)
Quarter: 2014Q2

REPORT INFORMATION
  Report Type: Spontaneous
  Country: US (occurrence: US)
  Receive Date: 20140523
  Receipt Date: 20140523
  Transmission Date: 20141212
  Serious: Yes (Other)
  Sender: FDA-Public Use
  Company Number: US-TEVA-482350USA

PATIENT
  Age: 59 Year
  Sex: Female
  Weight: 74.46 kg

DRUGS (2)
  1. PROAIR HFA [Suspect]
     Indication: LUNG DISORDER
  2. ADVAIR [Concomitant]
     Indication: DYSPNOEA

REACTIONS (2)
  - Chronic obstructive pulmonary disease [Unknown]
  - Urinary tract infection [Unknown]
